FAERS Safety Report 20322761 (Version 1)
Quarter: 2022Q1

REPORT INFORMATION
  Report Type: Other
  Country: US (occurrence: None)
  Receive Date: 20220111
  Receipt Date: 20220111
  Transmission Date: 20220423
  Serious: Yes (Death)
  Sender: FDA-Public Use
  Company Number: US-ROCHE-2999441

PATIENT
  Sex: Female

DRUGS (2)
  1. AVASTIN [Suspect]
     Active Substance: BEVACIZUMAB
     Indication: Malignant neoplasm of renal pelvis
     Dosage: INFUSE 840MG INTRAVENOUSLY EVERY 3 WEEK(S)
     Route: 042
  2. AVASTIN [Suspect]
     Active Substance: BEVACIZUMAB
     Indication: Ureteric cancer
     Dosage: INFUSE 840MG INTRAVENOUSLY EVERY 3 WEEK(S)
     Route: 042

REACTIONS (1)
  - Death [Fatal]
